FAERS Safety Report 7618025-1 (Version None)
Quarter: 2011Q3

REPORT INFORMATION
  Report Type: 
  Country: None (occurrence: None)
  Receive Date: 20110718
  Receipt Date: 20110715
  Transmission Date: 20111222
  Serious: No
  Sender: FDA-Public Use
  Company Number: PHHO2010AR15158

PATIENT
  Age: 3 Year

DRUGS (1)
  1. ILARIS [Suspect]
     Indication: CHRONIC INFANTILE NEUROLOGICAL CUTANEOUS AND ARTICULAR SYNDROME
     Dosage: UNK
     Dates: start: 20100729

REACTIONS (4)
  - PAIN [None]
  - ORAL HERPES [None]
  - ORAL DISORDER [None]
  - PYREXIA [None]
